FAERS Safety Report 6685028-3 (Version None)
Quarter: 2010Q2

REPORT INFORMATION
  Report Type: 
  Country: None (occurrence: None)
  Receive Date: 20100416
  Receipt Date: 20100412
  Transmission Date: 20101027
  Serious: No
  Sender: FDA-Public Use
  Company Number: US-CEPHALON-2010002162

PATIENT
  Sex: Female

DRUGS (5)
  1. FENTORA [Suspect]
     Indication: RHEUMATOID ARTHRITIS
  2. FENTORA [Suspect]
     Indication: FIBROMYALGIA
  3. ACTIQ [Suspect]
     Indication: RHEUMATOID ARTHRITIS
  4. ACTIQ [Suspect]
     Indication: FIBROMYALGIA
  5. DURAGESIC-100 [Concomitant]

REACTIONS (1)
  - DRUG PRESCRIBING ERROR [None]
